FAERS Safety Report 4975210-5 (Version None)
Quarter: 2006Q2

REPORT INFORMATION
  Report Type: 
  Country: None (occurrence: None)
  Receive Date: 20060417
  Receipt Date: 20060417
  Transmission Date: 20061013
  Serious: Yes (Disabling)
  Sender: FDA-Public Use
  Company Number: None

PATIENT
  Age: 49 Year
  Sex: Female

DRUGS (1)
  1. OMNIPAQUE 350 [Suspect]
     Indication: ABDOMINAL PAIN LOWER
     Dosage: 350 MG   ONE TIME   IV
     Route: 042
     Dates: start: 20060412, end: 20060412

REACTIONS (2)
  - ERYTHEMA [None]
  - URTICARIA [None]
